FAERS Safety Report 19296000 (Version 2)
Quarter: 2021Q2

REPORT INFORMATION
  Report Type: Spontaneous
  Country: US (occurrence: US)
  Receive Date: 20210524
  Receipt Date: 20210623
  Transmission Date: 20210717
  Serious: Yes (Hospitalization, Other)
  Sender: FDA-Public Use
  Company Number: US-AMGEN-USASP2021077255

PATIENT
  Age: 14 Year
  Sex: Male

DRUGS (2)
  1. ROMIPLOSTIM [Suspect]
     Active Substance: ROMIPLOSTIM
     Indication: IMMUNE THROMBOCYTOPENIA
     Dosage: UNK
     Route: 065
  2. SIROLIMUS. [Concomitant]
     Active Substance: SIROLIMUS
     Indication: IMMUNE THROMBOCYTOPENIA

REACTIONS (4)
  - COVID-19 pneumonia [Recovered/Resolved]
  - Cardiac dysfunction [Recovered/Resolved]
  - Labile blood pressure [Recovered/Resolved]
  - Platelet count increased [Recovered/Resolved]
